FAERS Safety Report 10921163 (Version 1)
Quarter: 2015Q1

REPORT INFORMATION
  Report Type: Spontaneous
  Country: US (occurrence: None)
  Receive Date: 20150313
  Receipt Date: 20150313
  Transmission Date: 20150721
  Serious: No
  Sender: FDA-Public Use
  Company Number: None

PATIENT
  Age: 48 Year
  Sex: Female

DRUGS (7)
  1. SOLU-MEDROL [Concomitant]
     Active Substance: METHYLPREDNISOLONE SODIUM SUCCINATE
  2. AMPYRA [Concomitant]
     Active Substance: DALFAMPRIDINE
  3. DICYCLOMINE [Concomitant]
     Active Substance: DICYCLOMINE HYDROCHLORIDE
  4. TECFIDERA [Concomitant]
     Active Substance: DIMETHYL FUMARATE
  5. BACLOFEN. [Concomitant]
     Active Substance: BACLOFEN
  6. ONDANSETRON [Concomitant]
     Active Substance: ONDANSETRON
  7. AMPYRA [Suspect]
     Active Substance: DALFAMPRIDINE
     Route: 048
     Dates: start: 201309, end: 201310

REACTIONS (1)
  - Drug effect decreased [None]

NARRATIVE: CASE EVENT DATE: 20131004
